FAERS Safety Report 24104356 (Version 1)
Quarter: 2024Q3

REPORT INFORMATION
  Report Type: Report from Study
  Country: MX (occurrence: None)
  Receive Date: 20240717
  Receipt Date: 20240717
  Transmission Date: 20241017
  Serious: Yes (Other)
  Sender: ASTRAZENECA
  Company Number: 2020SE51151

PATIENT
  Sex: Female
  Weight: 84 kg

DRUGS (2)
  1. XIGDUO XR [Suspect]
     Active Substance: DAPAGLIFLOZIN PROPANEDIOL\METFORMIN HYDROCHLORIDE
     Indication: Blood glucose abnormal
     Dosage: 1 TABLET (10/1000 MG) ORALLY DAILY SINCE 4 MONTHS AGO
     Route: 048
  2. APIXABAN [Concomitant]
     Active Substance: APIXABAN

REACTIONS (5)
  - Pulmonary hypertension [Unknown]
  - Malaise [Unknown]
  - Headache [Unknown]
  - Arterial disorder [Unknown]
  - Off label use [Unknown]
